FAERS Safety Report 16185577 (Version 1)
Quarter: 2019Q2

REPORT INFORMATION
  Report Type: Other
  Country: GB (occurrence: GB)
  Receive Date: 20190411
  Receipt Date: 20190411
  Transmission Date: 20190711
  Serious: Yes (Hospitalization)
  Sender: FDA-Public Use
  Company Number: GB-APOTEX-2019AP011338

PATIENT
  Age: 22 Month
  Sex: Male
  Weight: 14 kg

DRUGS (1)
  1. MONTELUKAST [Suspect]
     Active Substance: MONTELUKAST SODIUM
     Indication: ASTHMA
     Dosage: UNK
     Route: 048
     Dates: start: 20181005, end: 20181007

REACTIONS (2)
  - Nightmare [Recovered/Resolved]
  - Wheezing [Recovered/Resolved]
